FAERS Safety Report 22661297 (Version 1)
Quarter: 2023Q2

REPORT INFORMATION
  Report Type: Spontaneous
  Country: TR (occurrence: TR)
  Receive Date: 20230630
  Receipt Date: 20230630
  Transmission Date: 20230722
  Serious: Yes (Other)
  Sender: FDA-Public Use
  Company Number: TR-CHEMISCHE FABRIK KREUSSLER-ae001TR23

PATIENT
  Age: 63 Year
  Sex: Female

DRUGS (2)
  1. AETHOXYSKLEROL [Suspect]
     Active Substance: POLIDOCANOL
     Indication: Varicose vein
     Dosage: FIRST TREATMENT WAS 2 X INJECTIONS IN FEB-2023. TREATMENTS AT AN INTERVAL OF 3 WEEKS. A TOTAL OF 5 A
     Route: 042
     Dates: start: 202302
  2. ELIQUIS [Suspect]
     Active Substance: APIXABAN
     Indication: Product used for unknown indication

REACTIONS (2)
  - Administration site wound [Not Recovered/Not Resolved]
  - Inflammation of wound [Not Recovered/Not Resolved]

NARRATIVE: CASE EVENT DATE: 20230525
